FAERS Safety Report 4928134-3 (Version None)
Quarter: 2006Q1

REPORT INFORMATION
  Report Type: 
  Country: None (occurrence: None)
  Receive Date: 20060223
  Receipt Date: 20060217
  Transmission Date: 20060701
  Serious: Yes (Life-Threatening)
  Sender: FDA-Public Use
  Company Number: 2006-138796-NL

PATIENT
  Age: 44 Year
  Sex: Male

DRUGS (44)
  1. ROCURONIUM BROMIDE [Suspect]
     Indication: MUSCLE RELAXANT THERAPY
     Dosage: INTRAVENOUS
     Route: 042
     Dates: start: 20051206, end: 20051206
  2. ROCURONIUM BROMIDE [Suspect]
     Indication: MUSCLE RELAXANT THERAPY
     Dosage: INTRAVENOUS
     Route: 042
     Dates: start: 20051215, end: 20051215
  3. ROCURONIUM BROMIDE [Suspect]
     Indication: MUSCLE RELAXANT THERAPY
     Dosage: INTRAVENOUS
     Route: 042
     Dates: start: 20051219, end: 20051219
  4. ISOFLURANE [Suspect]
     Indication: ANAESTHESIA
     Dosage: RESPIRATORY (INHALATION)
     Route: 055
     Dates: start: 20051219, end: 20051219
  5. SEVOFLURANE [Suspect]
     Indication: ANAESTHESIA
     Dosage: RESPIRATORY (INHALATION)
     Route: 055
     Dates: start: 20051206, end: 20051206
  6. SEVOFLURANE [Suspect]
     Indication: ANAESTHESIA
     Dosage: RESPIRATORY (INHALATION)
     Route: 055
     Dates: start: 20051208, end: 20051208
  7. SEVOFLURANE [Suspect]
     Indication: ANAESTHESIA
     Dosage: RESPIRATORY (INHALATION)
     Route: 055
     Dates: start: 20051211, end: 20051211
  8. SEVOFLURANE [Suspect]
     Indication: ANAESTHESIA
     Dosage: RESPIRATORY (INHALATION)
     Route: 055
     Dates: start: 20051213, end: 20051213
  9. SEVOFLURANE [Suspect]
     Indication: ANAESTHESIA
     Dosage: RESPIRATORY (INHALATION)
     Route: 055
     Dates: start: 20051215, end: 20051215
  10. SEVOFLURANE [Suspect]
     Indication: ANAESTHESIA
     Dosage: RESPIRATORY (INHALATION)
     Route: 055
     Dates: start: 20051221, end: 20051221
  11. PROPOFOL [Suspect]
     Indication: ANAESTHESIA
     Dosage: 100 MG ONCE   INTRAVENOUS BOLUS/INTRAVENOUS
     Route: 040
     Dates: start: 20051215, end: 20051215
  12. PROPOFOL [Suspect]
     Indication: ANAESTHESIA
     Dosage: 100 MG ONCE   INTRAVENOUS BOLUS/INTRAVENOUS
     Route: 040
     Dates: start: 20051226, end: 20051226
  13. NOREPINEPHRINE HYDROCHLORIDE [Concomitant]
  14. EPINEPHRINE [Concomitant]
  15. FUROSEMIDE [Concomitant]
  16. DOBUTAMINE HCL [Concomitant]
  17. HYDROCORTISONE [Concomitant]
  18. MIDAZOLAM HYDROCHLORIDE [Concomitant]
  19. FENTANYL CITRATE [Concomitant]
  20. OXYBATE SODIUM [Concomitant]
  21. PIRITRAMIDE [Concomitant]
  22. DIPYRONE TAB [Concomitant]
  23. CHLORAL HYDRATE [Concomitant]
  24. LORAZEPAM [Concomitant]
  25. CLONIDINE HCL [Concomitant]
  26. PHYSOSTIGMINE SALICYLATE [Concomitant]
  27. PROMETHAZINE HCL [Concomitant]
  28. PLASMA EXPANDER [Concomitant]
  29. ELECTROLYTE FLUIDS [Concomitant]
  30. FLUCYTOSINE [Concomitant]
  31. AMPHOTERICIN B [Concomitant]
  32. SELENIDE SODIUM [Concomitant]
  33. FUROSEMIDE [Concomitant]
  34. AMBROXOL HYDROCHLORIDE [Concomitant]
  35. DIGITOXIN TAB [Concomitant]
  36. ESMOLOL HCL [Concomitant]
  37. INSULIN [Concomitant]
  38. HEPARIN SODIUM [Concomitant]
  39. METOPROLOL TARTRATE [Concomitant]
  40. HEPARIN-FRACTION SODIUM [Concomitant]
  41. PANTOPRAZOLE SODIUM [Concomitant]
  42. XALACOM [Concomitant]
  43. BRIMONIDINE TARTRATE [Concomitant]
  44. FUROSEMIDE [Concomitant]

REACTIONS (4)
  - BLOOD CREATINE PHOSPHOKINASE INCREASED [None]
  - BLOOD POTASSIUM INCREASED [None]
  - HYPERTHERMIA MALIGNANT [None]
  - MYOGLOBIN BLOOD INCREASED [None]
